FAERS Safety Report 5447335-1 (Version None)
Quarter: 2007Q3

REPORT INFORMATION
  Report Type: 
  Country: None (occurrence: None)
  Receive Date: 20070910
  Receipt Date: 20070906
  Transmission Date: 20080115
  Serious: Yes (Other)
  Sender: FDA-Public Use
  Company Number: FR-BRISTOL-MYERS SQUIBB COMPANY-13901285

PATIENT
  Sex: Male

DRUGS (1)
  1. LYSODREN [Suspect]
     Route: 048

REACTIONS (2)
  - ANOREXIA [None]
  - WEIGHT DECREASED [None]
